FAERS Safety Report 21466468 (Version 1)
Quarter: 2022Q4

REPORT INFORMATION
  Report Type: Report from Study
  Country: US (occurrence: US)
  Receive Date: 20221017
  Receipt Date: 20221017
  Transmission Date: 20230113
  Serious: Yes (Hospitalization)
  Sender: FDA-Public Use
  Company Number: US-ABBVIE-21K-163-4128563-00

PATIENT
  Age: 41 Year
  Sex: Male

DRUGS (2)
  1. HUMIRA [Suspect]
     Active Substance: ADALIMUMAB
     Indication: Crohn^s disease
     Dosage: TIME INTERVAL: 1 TOTAL
     Route: 058
     Dates: start: 20210913, end: 20210913
  2. HUMIRA [Suspect]
     Active Substance: ADALIMUMAB
     Dosage: TIME INTERVAL: 1 TOTAL
     Route: 058
     Dates: start: 20210928, end: 20210928

REACTIONS (34)
  - Abdominal pain [Not Recovered/Not Resolved]
  - Fatigue [Recovered/Resolved]
  - Fear [Not Recovered/Not Resolved]
  - Frequent bowel movements [Recovered/Resolved]
  - Asthenia [Unknown]
  - Decreased appetite [Unknown]
  - Weight decreased [Unknown]
  - Constipation [Unknown]
  - Gastrointestinal sounds abnormal [Unknown]
  - Skin disorder [Unknown]
  - Dermal cyst [Unknown]
  - Loss of personal independence in daily activities [Unknown]
  - Incorrect dose administered [Unknown]
  - Fatigue [Unknown]
  - Frequent bowel movements [Not Recovered/Not Resolved]
  - Insomnia [Unknown]
  - Haematochezia [Not Recovered/Not Resolved]
  - Abdominal distension [Unknown]
  - Flatulence [Unknown]
  - Anxiety [Unknown]
  - Hypoaesthesia [Unknown]
  - Depression [Unknown]
  - Depressed mood [Unknown]
  - Arthralgia [Unknown]
  - Pain [Unknown]
  - COVID-19 [Unknown]
  - Localised infection [Recovered/Resolved]
  - Nausea [Not Recovered/Not Resolved]
  - Diarrhoea [Unknown]
  - Unevaluable event [Unknown]
  - Abdominal pain upper [Not Recovered/Not Resolved]
  - Vomiting [Not Recovered/Not Resolved]
  - Injection site bruising [Recovering/Resolving]
  - Pain [Unknown]

NARRATIVE: CASE EVENT DATE: 20210901
